FAERS Safety Report 23450722 (Version 1)
Quarter: 2024Q1

REPORT INFORMATION
  Report Type: Spontaneous
  Country: US (occurrence: US)
  Receive Date: 20240129
  Receipt Date: 20240129
  Transmission Date: 20240410
  Serious: No
  Sender: FDA-Public Use
  Company Number: US-TARSUS PHARMACEUTICALS-TSP-US-2023-000020

PATIENT
  Age: 43 Year
  Sex: Female
  Weight: 53.515 kg

DRUGS (2)
  1. XDEMVY [Suspect]
     Active Substance: LOTILANER
     Indication: Demodex blepharitis
     Dosage: UNK
     Route: 047
     Dates: start: 20231004, end: 20231008
  2. LUMIFY [Concomitant]
     Active Substance: BRIMONIDINE TARTRATE
     Indication: Erythema of eyelid
     Dosage: UNK UNK, BID
     Route: 065

REACTIONS (6)
  - Eye pain [Recovered/Resolved]
  - Erythema of eyelid [Recovered/Resolved]
  - Condition aggravated [Recovered/Resolved]
  - Eyelid pain [Recovered/Resolved]
  - Ocular discomfort [Recovered/Resolved]
  - Hordeolum [Recovering/Resolving]

NARRATIVE: CASE EVENT DATE: 20231005
